FAERS Safety Report 8784577 (Version 1)
Quarter: 2012Q4

REPORT INFORMATION
  Report Type: Spontaneous
  Country: US (occurrence: None)
  Receive Date: 20120907
  Receipt Date: 20120907
  Transmission Date: 20130627
  Serious: No
  Sender: FDA-Public Use
  Company Number: None

PATIENT
  Sex: Male

DRUGS (1)
  1. NEXAVAR [Suspect]
     Indication: RENAL CELL CARCINOMA
     Route: 048
     Dates: start: 200612

REACTIONS (2)
  - Neuropathy peripheral [None]
  - Peripheral arterial occlusive disease [None]
